FAERS Safety Report 15717417 (Version 1)
Quarter: 2018Q4

REPORT INFORMATION
  Report Type: Spontaneous
  Country: US (occurrence: US)
  Receive Date: 20181129
  Receipt Date: 20181129
  Transmission Date: 20190205
  Serious: No
  Sender: FDA-Public Use
  Company Number: None

PATIENT
  Age: 66 Year
  Sex: Male
  Weight: 54.11 kg

DRUGS (1)
  1. FENTANYL. [Suspect]
     Active Substance: FENTANYL
     Dosage: ?          OTHER FREQUENCY:UNKNOWN;?
     Route: 061
     Dates: start: 20180611

REACTIONS (2)
  - Device adhesion issue [None]
  - Device defective [None]

NARRATIVE: CASE EVENT DATE: 20180725
